FAERS Safety Report 4729816-9 (Version None)
Quarter: 2005Q3

REPORT INFORMATION
  Report Type: 
  Country: None (occurrence: None)
  Receive Date: 20050801
  Receipt Date: 20020730
  Transmission Date: 20060218
  Serious: Yes (Death, Other)
  Sender: FDA-Public Use
  Company Number: US-MERCK-0208USA00578

PATIENT
  Age: 64 Year
  Sex: Female
  Weight: 109 kg

DRUGS (3)
  1. PREVACID [Concomitant]
     Route: 065
  2. PREDNISONE [Concomitant]
     Route: 065
  3. VIOXX [Suspect]
     Indication: ARTHRITIS
     Route: 048

REACTIONS (2)
  - INJURY [None]
  - MYOCARDIAL INFARCTION [None]
